FAERS Safety Report 21903755 (Version 1)
Quarter: 2023Q1

REPORT INFORMATION
  Report Type: Spontaneous
  Country: TW (occurrence: TW)
  Receive Date: 20230124
  Receipt Date: 20230124
  Transmission Date: 20230418
  Serious: Yes (Death, Other)
  Sender: FDA-Public Use
  Company Number: TW-AMGEN-TWNSP2023010065

PATIENT

DRUGS (2)
  1. PROLIA [Suspect]
     Active Substance: DENOSUMAB
     Indication: Osteoporosis
     Dosage: UNK
     Route: 065
  2. DIGOXIN [Concomitant]
     Active Substance: DIGOXIN
     Dosage: UNK

REACTIONS (11)
  - Lung neoplasm malignant [Fatal]
  - Overdose [Fatal]
  - Spinal compression fracture [Unknown]
  - Breast cancer [Unknown]
  - Colon cancer [Unknown]
  - Rectal cancer [Unknown]
  - Dementia [Unknown]
  - Renal cancer [Unknown]
  - Hepatocellular carcinoma [Unknown]
  - Pulmonary tuberculosis [Unknown]
  - Chronic obstructive pulmonary disease [Unknown]
